FAERS Safety Report 25506270 (Version 2)
Quarter: 2025Q4

REPORT INFORMATION
  Report Type: Spontaneous
  Country: US (occurrence: US)
  Receive Date: 20250702
  Receipt Date: 20251231
  Transmission Date: 20260118
  Serious: No
  Sender: SANOFI AVENTIS
  Company Number: US-SA-2025SA185649

PATIENT
  Age: 45 Year
  Sex: Female

DRUGS (3)
  1. DUPIXENT [Suspect]
     Active Substance: DUPILUMAB
     Indication: Dermatitis atopic
     Dosage: 300 MG, QOW
     Route: 058
     Dates: start: 202310
  2. MINOXIDIL [Concomitant]
     Active Substance: MINOXIDIL
  3. REZDIFFRA [Concomitant]
     Active Substance: RESMETIROM

REACTIONS (7)
  - Dermatitis atopic [Unknown]
  - Pruritus [Unknown]
  - Skin swelling [Unknown]
  - Erythema [Unknown]
  - Rash erythematous [Unknown]
  - Skin burning sensation [Unknown]
  - Dry skin [Unknown]

NARRATIVE: CASE EVENT DATE: 20250501
